FAERS Safety Report 10396686 (Version 2)
Quarter: 2014Q3

REPORT INFORMATION
  Report Type: Spontaneous
  Country: JP (occurrence: JP)
  Receive Date: 20140820
  Receipt Date: 20140907
  Transmission Date: 20150326
  Serious: Yes (Other)
  Sender: FDA-Public Use
  Company Number: PHHY2013JP161157

PATIENT
  Sex: Female

DRUGS (1)
  1. GLIVEC [Suspect]
     Active Substance: IMATINIB MESYLATE
     Indication: CHRONIC MYELOID LEUKAEMIA

REACTIONS (5)
  - Therapeutic response decreased [Unknown]
  - Lipase increased [Unknown]
  - Renal mass [Unknown]
  - Nervousness [Unknown]
  - Depression [Unknown]

NARRATIVE: CASE EVENT DATE: 20110614
